FAERS Safety Report 15966444 (Version 1)
Quarter: 2019Q1

REPORT INFORMATION
  Report Type: Spontaneous
  Country: US (occurrence: US)
  Receive Date: 20190214
  Receipt Date: 20190214
  Transmission Date: 20190418
  Serious: Yes (Other)
  Sender: FDA-Public Use
  Company Number: None

PATIENT
  Age: 80 Year
  Sex: Male
  Weight: 81 kg

DRUGS (10)
  1. DULOXETINE. [Concomitant]
     Active Substance: DULOXETINE
  2. ASPIRIN. [Concomitant]
     Active Substance: ASPIRIN
  3. DONEPEZIL. [Concomitant]
     Active Substance: DONEPEZIL
  4. OMEPRAZOLE. [Concomitant]
     Active Substance: OMEPRAZOLE
  5. SIMVASTATIN. [Concomitant]
     Active Substance: SIMVASTATIN
  6. CAPECITABINE. [Suspect]
     Active Substance: CAPECITABINE
     Indication: COLON CANCER
     Route: 048
     Dates: start: 20180813, end: 20190214
  7. LISINOPRIL. [Concomitant]
     Active Substance: LISINOPRIL
  8. MEMANTINE. [Concomitant]
     Active Substance: MEMANTINE
  9. EZETIMIBE. [Concomitant]
     Active Substance: EZETIMIBE
  10. FERROUS SULFATE. [Concomitant]
     Active Substance: FERROUS SULFATE

REACTIONS (2)
  - Blister [None]
  - Peripheral swelling [None]

NARRATIVE: CASE EVENT DATE: 20190214
